FAERS Safety Report 7461414-9 (Version None)
Quarter: 2011Q2

REPORT INFORMATION
  Report Type: 
  Country: None (occurrence: None)
  Receive Date: 20110428
  Receipt Date: 20110228
  Transmission Date: 20111010
  Serious: Yes (Hospitalization)
  Sender: FDA-Public Use
  Company Number: 2011GW000135

PATIENT
  Age: 56 Year
  Sex: Male

DRUGS (2)
  1. ZYCLARA [Suspect]
     Indication: BASAL CELL CARCINOMA
     Dosage: 3.75 PCT;QD;TOP
     Route: 061
     Dates: start: 20110101, end: 20110101
  2. ZYCLARA [Suspect]
     Indication: SQUAMOUS CELL CARCINOMA
     Dosage: 3.75 PCT;QD;TOP
     Route: 061
     Dates: start: 20110101, end: 20110101

REACTIONS (3)
  - ASTHENIA [None]
  - WHITE BLOOD CELL COUNT DECREASED [None]
  - SKIN EROSION [None]
